FAERS Safety Report 25798031 (Version 1)
Quarter: 2025Q3

REPORT INFORMATION
  Report Type: Report from Study
  Country: US (occurrence: US)
  Receive Date: 20250912
  Receipt Date: 20250912
  Transmission Date: 20251020
  Serious: Yes (Other)
  Sender: ABBVIE
  Company Number: US-ABBVIE-6452516

PATIENT
  Sex: Female

DRUGS (2)
  1. SKYRIZI [Suspect]
     Active Substance: RISANKIZUMAB-RZAA
     Indication: Psoriasis
     Route: 058
     Dates: start: 20200401
  2. UNSPECIFIED INGREDIENT [Suspect]
     Active Substance: UNSPECIFIED INGREDIENT
     Indication: Product used for unknown indication
     Route: 065

REACTIONS (6)
  - Spinal operation [Unknown]
  - Weight decreased [Recovering/Resolving]
  - Pain [Recovering/Resolving]
  - Apathy [Unknown]
  - Therapeutic product effect incomplete [Unknown]
  - Influenza [Unknown]

NARRATIVE: CASE EVENT DATE: 20250101
